FAERS Safety Report 20840672 (Version 2)
Quarter: 2023Q2

REPORT INFORMATION
  Report Type: Spontaneous
  Country: US (occurrence: US)
  Receive Date: 20220517
  Receipt Date: 20230425
  Transmission Date: 20230721
  Serious: No
  Sender: FDA-Public Use
  Company Number: US-PFIZER INC-202101619810

PATIENT
  Age: 71 Year
  Sex: Female

DRUGS (2)
  1. ZARONTIN [Suspect]
     Active Substance: ETHOSUXIMIDE
     Indication: Epilepsy
     Dosage: 1000 MG, DAILY (TOOK TWO 250 MG IN THE MORNING AND TWO IN THE EVENING)
  2. MYSOLINE [Concomitant]
     Active Substance: PRIMIDONE
     Dosage: UNK

REACTIONS (4)
  - Poor quality product administered [Unknown]
  - Product physical issue [Unknown]
  - Product contamination physical [Unknown]
  - Body height decreased [Unknown]
